FAERS Safety Report 6813729-2 (Version None)
Quarter: 2010Q3

REPORT INFORMATION
  Report Type: 
  Country: None (occurrence: None)
  Receive Date: 20100701
  Receipt Date: 20100622
  Transmission Date: 20110219
  Serious: Yes (Other)
  Sender: FDA-Public Use
  Company Number: GR-GENENTECH-303488

PATIENT
  Age: 32 Year
  Sex: Female
  Weight: 90 kg

DRUGS (3)
  1. MABTHERA [Suspect]
     Indication: PEMPHIGUS
     Dosage: 775 MG, UNK
     Route: 042
     Dates: start: 20100601
  2. PREDNISOLONE [Concomitant]
     Indication: PEMPHIGUS
     Dosage: UNK
  3. AZATHIOPRINE [Concomitant]
     Indication: PEMPHIGUS
     Dosage: UNK

REACTIONS (4)
  - ANGIOEDEMA [None]
  - ARTHRALGIA [None]
  - EPISCLERITIS [None]
  - OEDEMA [None]
